FAERS Safety Report 4673629-3 (Version None)
Quarter: 2005Q2

REPORT INFORMATION
  Report Type: 
  Country: None (occurrence: None)
  Receive Date: 20050525
  Receipt Date: 20050511
  Transmission Date: 20051028
  Serious: Yes (Other)
  Sender: FDA-Public Use
  Company Number: 2005AP02767

PATIENT
  Age: 53 Year
  Sex: Male

DRUGS (5)
  1. DIPRIVAN [Suspect]
     Dosage: ONE TIME
     Dates: start: 19910308
  2. SCOLINE [Suspect]
     Dosage: ONE TIME
     Dates: start: 19910308
  3. SCOLINE [Suspect]
     Dates: start: 19910311
  4. SERENACE [Concomitant]
     Route: 048
     Dates: start: 19910213, end: 19910320
  5. TOLVON [Concomitant]
     Indication: DEPRESSION
     Route: 048
     Dates: start: 19910215, end: 19910416

REACTIONS (4)
  - DRUG INEFFECTIVE [None]
  - HYPERTONIA [None]
  - LACTIC ACIDOSIS [None]
  - MUSCLE SPASMS [None]
